FAERS Safety Report 4763775-8 (Version None)
Quarter: 2005Q3

REPORT INFORMATION
  Report Type: 
  Country: None (occurrence: None)
  Receive Date: 20050908
  Receipt Date: 20050804
  Transmission Date: 20060218
  Serious: Yes (Death, Hospitalization)
  Sender: FDA-Public Use
  Company Number: JP-BRISTOL-MYERS SQUIBB COMPANY-13064282

PATIENT
  Age: 91 Year
  Sex: Female

DRUGS (1)
  1. MAXIPIME [Suspect]
     Indication: PNEUMONIA
     Route: 042
     Dates: start: 20050716, end: 20050723

REACTIONS (2)
  - HEPATIC FAILURE [None]
  - RENAL DISORDER [None]
